FAERS Safety Report 5914482-7 (Version None)
Quarter: 2008Q4

REPORT INFORMATION
  Report Type: 
  Country: None (occurrence: None)
  Receive Date: 20081008
  Receipt Date: 20080923
  Transmission Date: 20090506
  Serious: Yes (Death, Other)
  Sender: FDA-Public Use
  Company Number: 2008AR0144

PATIENT
  Age: 3 Month
  Sex: Female
  Weight: 7 kg

DRUGS (2)
  1. ORFADIN [Suspect]
     Indication: TYROSINAEMIA
     Dosage: 1, 6 MG/KG, ORAL
     Route: 048
     Dates: start: 20080620, end: 20080923
  2. GANCICLOVIR [Suspect]
     Dosage: 5 MG/KG

REACTIONS (5)
  - CONDITION AGGRAVATED [None]
  - DRUG INEFFECTIVE [None]
  - HEPATIC FAILURE [None]
  - LEUKOPENIA [None]
  - THROMBOCYTOPENIA [None]
